FAERS Safety Report 6666221-2 (Version None)
Quarter: 2010Q2

REPORT INFORMATION
  Report Type: 
  Country: None (occurrence: None)
  Receive Date: 20100402
  Receipt Date: 20100323
  Transmission Date: 20101027
  Serious: Yes (Other)
  Sender: FDA-Public Use
  Company Number: IT-WATSON-2010-04030

PATIENT
  Age: 20 Year
  Sex: Male

DRUGS (2)
  1. RISPERIDONE [Suspect]
     Indication: PSYCHOTIC DISORDER
     Dosage: 1/2 MG, DAILY
     Route: 065
  2. RISPERIDONE [Suspect]
     Indication: AGGRESSION

REACTIONS (3)
  - DUODENITIS [None]
  - GASTROOESOPHAGEAL REFLUX DISEASE [None]
  - OESOPHAGITIS [None]
